FAERS Safety Report 11601305 (Version 4)
Quarter: 2016Q3

REPORT INFORMATION
  Report Type: Report from Study
  Country: US (occurrence: US)
  Receive Date: 20151006
  Receipt Date: 20160715
  Transmission Date: 20161109
  Serious: Yes (Other)
  Sender: FDA-Public Use
  Company Number: US-AMGEN-USASP2015015912

PATIENT
  Age: 60 Year
  Sex: Female

DRUGS (6)
  1. TEMAZEPAM ACTAVIS [Concomitant]
     Indication: SLEEP TERROR
     Dosage: 30 MG, UNK
     Dates: start: 20130118
  2. CALCIUM [Concomitant]
     Active Substance: CALCIUM
     Dosage: 2500 MG, UNK
  3. PROLIA [Suspect]
     Active Substance: DENOSUMAB
     Indication: OSTEOPOROSIS
     Dosage: UNK
     Route: 065
     Dates: start: 20140918
  4. MULTIVITAMIN [Concomitant]
     Active Substance: VITAMINS
     Dosage: UNK UNK, QD
  5. VITAMIN D [Concomitant]
     Active Substance: CHOLECALCIFEROL
     Dosage: 2400 UNK, UNK
  6. SYNTHROID [Concomitant]
     Active Substance: LEVOTHYROXINE SODIUM
     Indication: THYROID DISORDER

REACTIONS (10)
  - Osteonecrosis of jaw [Unknown]
  - Clostridium difficile infection [Unknown]
  - Weight decreased [Unknown]
  - Dizziness [Unknown]
  - Anxiety [Recovered/Resolved]
  - Nightmare [Unknown]
  - Short-bowel syndrome [Unknown]
  - Wound [Not Recovered/Not Resolved]
  - Infection [Not Recovered/Not Resolved]
  - Agitation [Recovered/Resolved]

NARRATIVE: CASE EVENT DATE: 201412
